FAERS Safety Report 4997051-5 (Version None)
Quarter: 2006Q2

REPORT INFORMATION
  Report Type: 
  Country: None (occurrence: None)
  Receive Date: 20060505
  Receipt Date: 20060426
  Transmission Date: 20061013
  Serious: Yes (Hospitalization)
  Sender: FDA-Public Use
  Company Number: 2006BI003962

PATIENT
  Age: 52 Year
  Sex: Female

DRUGS (3)
  1. AVONEX [Suspect]
     Indication: MULTIPLE SCLEROSIS
     Dosage: 15 UG; QW; IM
     Route: 030
  2. AVONEX [Suspect]
     Indication: MULTIPLE SCLEROSIS
     Dosage: SEE IMAGE
     Route: 030
     Dates: end: 20060223
  3. ANTIBIOTIC (NOS) [Concomitant]

REACTIONS (10)
  - CONSTIPATION [None]
  - CONTUSION [None]
  - CYSTITIS [None]
  - DEHYDRATION [None]
  - DISORIENTATION [None]
  - DYSURIA [None]
  - FALL [None]
  - FATIGUE [None]
  - PARALYSIS [None]
  - THIRST [None]
